FAERS Safety Report 6129530-1 (Version None)
Quarter: 2009Q1

REPORT INFORMATION
  Report Type: 
  Country: None (occurrence: None)
  Receive Date: 20090320
  Receipt Date: 20090316
  Transmission Date: 20090719
  Serious: Yes (Hospitalization)
  Sender: FDA-Public Use
  Company Number: 2009SP005922

PATIENT
  Age: 51 Year
  Sex: Male
  Weight: 57 kg

DRUGS (2)
  1. PEG-INTRON [Suspect]
     Indication: HEPATITIS C
     Dosage: 80 MCG;QW;SC
     Route: 058
     Dates: start: 20090121, end: 20090311
  2. REBETOL [Suspect]
     Indication: HEPATITIS C
     Dosage: 600 MG;QD;PO
     Route: 048
     Dates: start: 20090121, end: 20090311

REACTIONS (3)
  - ASPARTATE AMINOTRANSFERASE INCREASED [None]
  - CHOLECYSTITIS [None]
  - HYDROCHOLECYSTIS [None]
